FAERS Safety Report 19030706 (Version 3)
Quarter: 2021Q2

REPORT INFORMATION
  Report Type: Spontaneous
  Country: US (occurrence: US)
  Receive Date: 20210319
  Receipt Date: 20210423
  Transmission Date: 20210717
  Serious: Yes (Other)
  Sender: FDA-Public Use
  Company Number: US-GLAXOSMITHKLINE-US2021AMR063357

PATIENT
  Sex: Female

DRUGS (1)
  1. ZEJULA [Suspect]
     Active Substance: NIRAPARIB
     Indication: OVARIAN CANCER
     Dosage: 200 MG, QD
     Dates: start: 20210312, end: 20210419

REACTIONS (9)
  - Dyspnoea [Unknown]
  - Malignant neoplasm progression [Unknown]
  - Insomnia [Unknown]
  - Nausea [Unknown]
  - Dyspepsia [Unknown]
  - Oropharyngeal pain [Unknown]
  - Constipation [Unknown]
  - Arthralgia [Unknown]
  - Adverse drug reaction [Unknown]
